FAERS Safety Report 9028548 (Version 2)
Quarter: 2013Q1

REPORT INFORMATION
  Report Type: Spontaneous
  Country: CO (occurrence: CO)
  Receive Date: 20130124
  Receipt Date: 20130228
  Transmission Date: 20140127
  Serious: Yes (Other)
  Sender: FDA-Public Use
  Company Number: CO-ROCHE-1182760

PATIENT
  Age: 35 Year
  Sex: Female

DRUGS (7)
  1. XOLAIR [Suspect]
     Indication: ASTHMA
     Route: 058
     Dates: start: 20121124
  2. XOLAIR [Suspect]
     Route: 065
     Dates: start: 20130208
  3. FLENAC [Concomitant]
  4. SALBUTAMOL [Concomitant]
  5. MEDROL [Concomitant]
  6. HIDROXICINA [Concomitant]
  7. BROMURO DE IPRATROPIO [Concomitant]

REACTIONS (9)
  - Bronchospasm [Recovering/Resolving]
  - Pain in extremity [Not Recovered/Not Resolved]
  - Back pain [Not Recovered/Not Resolved]
  - Pyrexia [Not Recovered/Not Resolved]
  - Asthenia [Unknown]
  - Arthralgia [Recovering/Resolving]
  - Rash [Recovering/Resolving]
  - Pruritus [Recovering/Resolving]
  - Influenza like illness [Recovered/Resolved]
